FAERS Safety Report 23897073 (Version 1)
Quarter: 2024Q2

REPORT INFORMATION
  Report Type: Spontaneous
  Country: US (occurrence: US)
  Receive Date: 20240524
  Receipt Date: 20240524
  Transmission Date: 20240715
  Serious: Yes (Other)
  Sender: FDA-Public Use
  Company Number: US-PRESTIGE-202405-US-001717

PATIENT
  Sex: Female

DRUGS (1)
  1. COSMETICS [Suspect]
     Active Substance: COSMETICS
     Indication: Product used for unknown indication
     Dosage: UNKNOWN
     Route: 067

REACTIONS (1)
  - Fungal infection [Unknown]
